FAERS Safety Report 4366741-X (Version None)
Quarter: 2004Q2

REPORT INFORMATION
  Report Type: 
  Country: None (occurrence: None)
  Receive Date: 20040527
  Receipt Date: 20040517
  Transmission Date: 20050107
  Serious: Yes (Other)
  Sender: FDA-Public Use
  Company Number: CIO04012728

PATIENT
  Age: 21 Year
  Sex: Female
  Weight: 68 kg

DRUGS (1)
  1. DAYQUIL COLD + FLU RELIEF (PSEUDOEPHEDRINE HYDROCHLORIDE 60 MG, DEXTRO [Suspect]
     Dosage: 2 LIQCAP, 1/DAY FOR 1 DAY, ORAL
     Route: 048
     Dates: start: 20040516, end: 20040516

REACTIONS (1)
  - ANAPHYLACTIC REACTION [None]
